FAERS Safety Report 4712373-0 (Version None)
Quarter: 2005Q3

REPORT INFORMATION
  Report Type: 
  Country: None (occurrence: None)
  Receive Date: 20050711
  Receipt Date: 20050628
  Transmission Date: 20060218
  Serious: Yes (Other)
  Sender: FDA-Public Use
  Company Number: A210937

PATIENT
  Age: 73 Year
  Sex: Female
  Weight: 81.6475 kg

DRUGS (11)
  1. GEODON [Suspect]
     Indication: BIPOLAR I DISORDER
     Dosage: 40 MG (2 IN 1 D), ORAL
     Route: 048
     Dates: start: 20020401, end: 20020101
  2. LITHANE [Suspect]
     Indication: BIPOLAR I DISORDER
     Dosage: ORAL
     Route: 048
  3. LEVOXYL [Concomitant]
  4. LIPITOR [Concomitant]
  5. TRIAMTERENE AND HYDROCHLOROTHIAZIDE [Concomitant]
  6. MULTI-VITAMINS [Concomitant]
  7. VITAMIN E [Concomitant]
  8. GLUCOSAMINE [Concomitant]
  9. CALCIUM GLUCONATE [Concomitant]
  10. ASPIRIN [Concomitant]
  11. CENESTIN [Concomitant]

REACTIONS (14)
  - ARACHNOID CYST [None]
  - CONDITION AGGRAVATED [None]
  - CONSTIPATION [None]
  - CONVULSION [None]
  - DRY MOUTH [None]
  - DYSKINESIA [None]
  - FEELING ABNORMAL [None]
  - HEART RATE IRREGULAR [None]
  - INSOMNIA [None]
  - MAJOR DEPRESSION [None]
  - MUSCLE TWITCHING [None]
  - PARKINSON'S DISEASE [None]
  - TACHYCARDIA [None]
  - TARDIVE DYSKINESIA [None]
